FAERS Safety Report 23576839 (Version 1)
Quarter: 2024Q1

REPORT INFORMATION
  Report Type: Spontaneous
  Country: EG (occurrence: EG)
  Receive Date: 20240228
  Receipt Date: 20240228
  Transmission Date: 20240410
  Serious: Yes (Other)
  Sender: FDA-Public Use
  Company Number: EG-SANDOZ-SDZ2023EG015497

PATIENT
  Age: 38 Year
  Sex: Male

DRUGS (4)
  1. COSENTYX [Suspect]
     Active Substance: SECUKINUMAB
     Indication: Psoriatic arthropathy
     Dosage: 150 MG ,2 PREFILLED PENS 150 MGS EVERY 2 WEEKS AT THE 1ST MONTHS  THEN 1 PREFILLED PEN 300 MGS EVERY
     Route: 058
     Dates: start: 20230503
  2. COSENTYX [Suspect]
     Active Substance: SECUKINUMAB
     Dosage: 300 MG,2 PREFILLED PENS 150 MGS EVERY 2 WEEKS AT THE 1ST MONTHS  THEN 1 PREFILLED PEN 300 MGS EVERY
     Route: 058
  3. HYRIMOZ [Suspect]
     Active Substance: ADALIMUMAB-ADAZ
     Indication: Psoriatic arthropathy
     Dosage: UNK
     Route: 065
     Dates: start: 202302, end: 202305
  4. OMEGA 3 [Concomitant]
     Active Substance: CAPSAICIN
     Indication: Product used for unknown indication
     Dosage: UNK ,2 TABS DAILY (ONE AT MORNING  AND ONE AT NIGHT)
     Route: 065
     Dates: start: 20211006

REACTIONS (6)
  - Hepatic enzyme abnormal [Unknown]
  - Blood cholesterol increased [Unknown]
  - Psoriatic arthropathy [Recovering/Resolving]
  - Mental disorder [Recovering/Resolving]
  - Drug ineffective [Unknown]
  - Needle issue [Unknown]

NARRATIVE: CASE EVENT DATE: 20230501
